FAERS Safety Report 16551775 (Version 1)
Quarter: 2019Q3

REPORT INFORMATION
  Report Type: Spontaneous
  Country: RU (occurrence: RU)
  Receive Date: 20190710
  Receipt Date: 20190710
  Transmission Date: 20191004
  Serious: Yes (Other)
  Sender: FDA-Public Use
  Company Number: RU-PFIZER INC-2019288372

PATIENT
  Age: 82 Year
  Sex: Male

DRUGS (6)
  1. GIPOTIAZID [Concomitant]
     Dosage: UNK (25, NO UNIT REPORTED)
  2. DIUVER [Concomitant]
     Active Substance: TORSEMIDE
     Dosage: 20 MG, UNK
  3. CARVEDILOL. [Concomitant]
     Active Substance: CARVEDILOL
     Dosage: UNK (12.5, NO UNIT REPORTED)
  4. CARDIOMAGNYL [Concomitant]
     Active Substance: ASPIRIN\MAGNESIUM HYDROXIDE
     Dosage: UNK (75, NO UNIT REPORTED)
  5. INSPRA [Suspect]
     Active Substance: EPLERENONE
     Dosage: 25 MG, UNK
  6. RAMIPRIL. [Concomitant]
     Active Substance: RAMIPRIL
     Dosage: 5 MG, UNK

REACTIONS (3)
  - Dyspnoea [Recovering/Resolving]
  - Cardiac failure congestive [Recovered/Resolved]
  - Oedema [Recovering/Resolving]
